FAERS Safety Report 10461212 (Version 1)
Quarter: 2014Q3

REPORT INFORMATION
  Report Type: Spontaneous
  Country: US (occurrence: None)
  Receive Date: 20140917
  Receipt Date: 20140917
  Transmission Date: 20150326
  Serious: Yes (Hospitalization)
  Sender: FDA-Public Use
  Company Number: None

PATIENT
  Age: 61 Year
  Sex: Male

DRUGS (1)
  1. TEMODAR [Suspect]
     Active Substance: TEMOZOLOMIDE
     Indication: NEOPLASM MALIGNANT
     Dosage: 350MG CAPSULE  DAILY FOR 5DAYS  EVERY 28 DAYS  ORAL
     Route: 048
     Dates: start: 20140812

REACTIONS (3)
  - General physical health deterioration [None]
  - White blood cell count decreased [None]
  - Hemiparesis [None]

NARRATIVE: CASE EVENT DATE: 20140910
